FAERS Safety Report 17739598 (Version 1)
Quarter: 2020Q2

REPORT INFORMATION
  Report Type: Spontaneous
  Country: SE (occurrence: SE)
  Receive Date: 20200504
  Receipt Date: 20200504
  Transmission Date: 20200714
  Serious: Yes (Hospitalization)
  Sender: FDA-Public Use
  Company Number: SE-ACCORD-180745

PATIENT
  Age: 77 Year
  Sex: Female

DRUGS (12)
  1. FURIX [Concomitant]
  2. ACETYLSALICYLIC ACID [Concomitant]
     Active Substance: ASPIRIN
  3. BISOPROLOL [Concomitant]
     Active Substance: BISOPROLOL
  4. BEHEPAN [Concomitant]
  5. ALLOPURINOL. [Suspect]
     Active Substance: ALLOPURINOL
     Indication: HYPERURICAEMIA
     Route: 048
     Dates: start: 20200218, end: 20200326
  6. BRILIQUE [Concomitant]
     Active Substance: TICAGRELOR
     Dates: start: 20200204
  7. MAGNESIUM MEDA [Concomitant]
  8. CRESTOR [Concomitant]
     Active Substance: ROSUVASTATIN CALCIUM
     Dates: start: 20200214
  9. AMLODIPINE [Concomitant]
     Active Substance: AMLODIPINE BESYLATE
  10. CANDESARTAN. [Concomitant]
     Active Substance: CANDESARTAN
  11. ALVEDON [Concomitant]
     Active Substance: ACETAMINOPHEN
  12. NITROLINGUAL [Concomitant]
     Active Substance: NITROGLYCERIN

REACTIONS (1)
  - Drug reaction with eosinophilia and systemic symptoms [Not Recovered/Not Resolved]

NARRATIVE: CASE EVENT DATE: 20200325
